FAERS Safety Report 12221338 (Version 1)
Quarter: 2016Q1

REPORT INFORMATION
  Report Type: Spontaneous
  Country: US (occurrence: US)
  Receive Date: 20160330
  Receipt Date: 20160330
  Transmission Date: 20160526
  Serious: No
  Sender: FDA-Public Use
  Company Number: US-MYLANLABS-2015M1025451

PATIENT
  Sex: Female
  Weight: 74.83 kg

DRUGS (3)
  1. ESTRADIOL. [Suspect]
     Active Substance: ESTRADIOL
     Dosage: 0.025 MG, QD, CHANGE QW
     Route: 062
     Dates: start: 201507, end: 201507
  2. ESTRADIOL. [Suspect]
     Active Substance: ESTRADIOL
     Indication: HYSTERECTOMY
     Dosage: 0.025 MG, QD, CHANGE QW
     Route: 062
     Dates: start: 201506, end: 201506
  3. ESTRADIOL. [Suspect]
     Active Substance: ESTRADIOL
     Indication: HORMONE REPLACEMENT THERAPY
     Dosage: 0.025 MG, QD, CHANGE QW
     Route: 062
     Dates: start: 201502, end: 201505

REACTIONS (4)
  - Parosmia [Recovered/Resolved]
  - Paraesthesia oral [Recovered/Resolved]
  - Hypersensitivity [Recovered/Resolved]
  - Pharyngeal oedema [Recovered/Resolved]

NARRATIVE: CASE EVENT DATE: 2015
